FAERS Safety Report 12113991 (Version 1)
Quarter: 2016Q1

REPORT INFORMATION
  Report Type: Spontaneous
  Country: US (occurrence: US)
  Receive Date: 20160225
  Receipt Date: 20160225
  Transmission Date: 20160526
  Serious: No
  Sender: FDA-Public Use
  Company Number: US-PFIZER INC-2016065042

PATIENT
  Sex: Female

DRUGS (1)
  1. MENEST [Suspect]
     Active Substance: ESTROGENS, ESTERIFIED
     Dosage: 1.25 MG, UNK

REACTIONS (3)
  - Hot flush [Unknown]
  - Intentional product misuse [Unknown]
  - Insomnia [Unknown]
